FAERS Safety Report 9753582 (Version 1)
Quarter: 2013Q4

REPORT INFORMATION
  Report Type: Spontaneous
  Country: US (occurrence: None)
  Receive Date: 20131211
  Receipt Date: 20131211
  Transmission Date: 20140711
  Serious: Yes (Other)
  Sender: FDA-Public Use
  Company Number: 2013HINLIT0274

PATIENT
  Age: 46 Year
  Sex: Male

DRUGS (5)
  1. LEVETIRACETAM [Suspect]
     Indication: CONVULSION
     Route: 048
  2. METHOTREXATE (METHOTREXATE) [Concomitant]
  3. LEUCOVORIN RESCUE (LEUCOVORIN RESCUE) [Concomitant]
  4. FLUOXETINE (FLUOXETINE) [Concomitant]
  5. LORAZEPAM (LORAZEPAM) [Concomitant]

REACTIONS (2)
  - Drug interaction [None]
  - Drug level increased [None]
